FAERS Safety Report 9965380 (Version 1)
Quarter: 2014Q1

REPORT INFORMATION
  Report Type: Report from Study
  Country: MX (occurrence: MX)
  Receive Date: 20140305
  Receipt Date: 20140305
  Transmission Date: 20141002
  Serious: Yes (Death)
  Sender: FDA-Public Use
  Company Number: PHHY2014MX026725

PATIENT
  Age: 70 Year
  Sex: Male

DRUGS (1)
  1. TEGRETOL 200 LC [Suspect]
     Dosage: 3 DF (200 MG) DAILY
     Route: 048
     Dates: start: 20131111

REACTIONS (1)
  - Amyotrophic lateral sclerosis [Fatal]
